FAERS Safety Report 21215110 (Version 1)
Quarter: 2022Q3

REPORT INFORMATION
  Report Type: Spontaneous
  Country: DE (occurrence: None)
  Receive Date: 20220816
  Receipt Date: 20220816
  Transmission Date: 20221027
  Serious: Yes (Death, Other)
  Sender: FDA-Public Use
  Company Number: DE-ADIENNEP-2022AD000517

PATIENT
  Age: 11 Year
  Sex: Male

DRUGS (3)
  1. THIOTEPA [Suspect]
     Active Substance: THIOTEPA
     Indication: Allogenic stem cell transplantation
  2. FLUDARABINE [Suspect]
     Active Substance: FLUDARABINE PHOSPHATE
     Indication: Allogenic stem cell transplantation
  3. ATG-FRESENIUS [Suspect]
     Active Substance: LAPINE T-LYMPHOCYTE IMMUNE GLOBULIN
     Indication: Allogenic stem cell transplantation

REACTIONS (7)
  - Acute graft versus host disease in intestine [Unknown]
  - Chronic graft versus host disease in skin [Unknown]
  - Chronic graft versus host disease in lung [Unknown]
  - Chronic graft versus host disease in intestine [Unknown]
  - Chronic graft versus host disease in liver [Unknown]
  - Chronic graft versus host disease [Fatal]
  - Coagulopathy [Fatal]
